FAERS Safety Report 10031272 (Version 1)
Quarter: 2014Q1

REPORT INFORMATION
  Report Type: Spontaneous
  Country: US (occurrence: US)
  Receive Date: 20140324
  Receipt Date: 20140324
  Transmission Date: 20141002
  Serious: No
  Sender: FDA-Public Use
  Company Number: US-009507513-1403USA010634

PATIENT
  Age: 49 Year
  Sex: Male

DRUGS (1)
  1. PROSCAR [Suspect]
     Indication: PROSTATOMEGALY
     Dosage: 5 MG DAILY
     Route: 048
     Dates: start: 201203

REACTIONS (1)
  - Ejaculation disorder [Recovering/Resolving]
